FAERS Safety Report 20001486 (Version 1)
Quarter: 2021Q4

REPORT INFORMATION
  Report Type: Spontaneous
  Country: US (occurrence: US)
  Receive Date: 20211027
  Receipt Date: 20211027
  Transmission Date: 20220303
  Serious: No
  Sender: FDA-Public Use
  Company Number: None

PATIENT
  Age: 63 Year
  Sex: Male
  Weight: 75.15 kg

DRUGS (1)
  1. TIZANIDINE [Suspect]
     Active Substance: TIZANIDINE
     Indication: Muscle spasms
     Dosage: ?          QUANTITY:1 TABLET(S);
     Route: 048
     Dates: start: 20211026, end: 20211027

REACTIONS (4)
  - Muscle spasms [None]
  - Pain [None]
  - Penile pain [None]
  - Penile pain [None]

NARRATIVE: CASE EVENT DATE: 20211027
